FAERS Safety Report 14638459 (Version 1)
Quarter: 2018Q1

REPORT INFORMATION
  Report Type: Spontaneous
  Country: US (occurrence: US)
  Receive Date: 20180314
  Receipt Date: 20180314
  Transmission Date: 20180509
  Serious: Yes (Life-Threatening, Disabling)
  Sender: FDA-Public Use
  Company Number: None

PATIENT
  Age: 76 Year
  Sex: Female
  Weight: 79.83 kg

DRUGS (16)
  1. VITAMIN B12 [Concomitant]
     Active Substance: CYANOCOBALAMIN
  2. LORAZEPAM. [Concomitant]
     Active Substance: LORAZEPAM
  3. DULOXETINE. [Concomitant]
     Active Substance: DULOXETINE
  4. LEVOTHYROXINE. [Concomitant]
     Active Substance: LEVOTHYROXINE
  5. WELLBUTRIN XL [Suspect]
     Active Substance: BUPROPION HYDROCHLORIDE
  6. RESCUE INHALER [Concomitant]
  7. CAL. CARB [Concomitant]
  8. ADVAIR HFA [Concomitant]
     Active Substance: FLUTICASONE PROPIONATE\SALMETEROL XINAFOATE
  9. CRANBERRY. [Concomitant]
     Active Substance: CRANBERRY
  10. LYSINE [Concomitant]
     Active Substance: LYSINE
  11. MULTI VIT [Concomitant]
  12. METOPROLOL. [Concomitant]
     Active Substance: METOPROLOL
  13. OMEPRAZOLE DR [Concomitant]
     Active Substance: OMEPRAZOLE
  14. ASA 81MG [Concomitant]
  15. SIMVASTATIN. [Concomitant]
     Active Substance: SIMVASTATIN
  16. VITAMIN D [Concomitant]
     Active Substance: CHOLECALCIFEROL

REACTIONS (14)
  - Amnesia [None]
  - Loss of personal independence in daily activities [None]
  - Pain of skin [None]
  - Asthenia [None]
  - Quality of life decreased [None]
  - Pain [None]
  - Balance disorder [None]
  - Mood altered [None]
  - Tremor [None]
  - Tachyphrenia [None]
  - Bone pain [None]
  - Fatigue [None]
  - Suicidal ideation [None]
  - Impaired driving ability [None]

NARRATIVE: CASE EVENT DATE: 20170920
